FAERS Safety Report 7539009-8 (Version None)
Quarter: 2011Q2

REPORT INFORMATION
  Report Type: 
  Country: None (occurrence: None)
  Receive Date: 20110610
  Receipt Date: 20110606
  Transmission Date: 20111010
  Serious: No
  Sender: FDA-Public Use
  Company Number: US-BAYER-2011-048868

PATIENT
  Sex: Female

DRUGS (1)
  1. MIRENA [Suspect]
     Indication: PRODUCT USED FOR UNKNOWN INDICATION
     Dosage: 20 MCG/24HR, CONT
     Route: 015
     Dates: start: 20080901

REACTIONS (4)
  - ADVERSE DRUG REACTION [None]
  - MOOD SWINGS [None]
  - METRORRHAGIA [None]
  - WEIGHT LOSS POOR [None]
